FAERS Safety Report 5368273-9 (Version None)
Quarter: 2007Q2

REPORT INFORMATION
  Report Type: 
  Country: None (occurrence: None)
  Receive Date: 20070619
  Receipt Date: 20070604
  Transmission Date: 20071010
  Serious: Yes (Disabling)
  Sender: FDA-Public Use
  Company Number: 2007RR-07946

PATIENT
  Age: 81 Year
  Sex: Female
  Weight: 67 kg

DRUGS (6)
  1. SIMVASTATIN [Suspect]
     Indication: BLOOD CHOLESTEROL INCREASED
     Dosage: 10 MG, ORAL
     Route: 048
     Dates: start: 20060216, end: 20070116
  2. BECLOMETHASONE DIPROPIONATE [Concomitant]
  3. BENDROFLUMETHIAZIDE (BENDROFLUMETHIAZIDE) UNKNOWN [Concomitant]
  4. CANDESARTAN CILEXETIL [Suspect]
  5. LACTULOSE [Concomitant]
  6. SALBUTAMOOL (SALBUTAMOL) [Concomitant]

REACTIONS (1)
  - TENDONITIS [None]
